FAERS Safety Report 8209776-9 (Version None)
Quarter: 2012Q1

REPORT INFORMATION
  Report Type: 
  Country: None (occurrence: None)
  Receive Date: 20120314
  Receipt Date: 20120305
  Transmission Date: 20120608
  Serious: Yes (Hospitalization)
  Sender: FDA-Public Use
  Company Number: JP-ASTRAZENECA-2012SE12982

PATIENT
  Age: 63 Year
  Sex: Male
  Weight: 63 kg

DRUGS (8)
  1. CRESTOR [Suspect]
     Indication: HYPERCHOLESTEROLAEMIA
     Route: 048
     Dates: start: 20100601, end: 20120216
  2. ASPIRIN [Concomitant]
     Route: 048
     Dates: start: 20080601
  3. PLETAL [Suspect]
     Indication: CEREBRAL INFARCTION
     Route: 048
     Dates: start: 20100601, end: 20120216
  4. AMLODIPINE [Concomitant]
     Route: 048
     Dates: start: 20080601
  5. SULBACTAM-AMPICILLIN [Concomitant]
     Route: 048
     Dates: start: 20120214, end: 20120216
  6. BLOSTAR M [Concomitant]
     Route: 048
     Dates: end: 20120216
  7. METFORMIN HCL [Concomitant]
     Route: 048
     Dates: end: 20120216
  8. METLIGINE [Concomitant]
     Route: 048
     Dates: end: 20120216

REACTIONS (1)
  - HEPATIC FUNCTION ABNORMAL [None]
